FAERS Safety Report 9799104 (Version 2)
Quarter: 2014Q1

REPORT INFORMATION
  Report Type: Spontaneous
  Country: US (occurrence: US)
  Receive Date: 20140106
  Receipt Date: 20140106
  Transmission Date: 20141002
  Serious: No
  Sender: FDA-Public Use
  Company Number: US-GILEAD-2010-0033269

PATIENT
  Sex: Male

DRUGS (16)
  1. LETAIRIS [Suspect]
     Indication: PULMONARY ARTERIAL HYPERTENSION
     Route: 048
     Dates: start: 20101019
  2. COREG [Concomitant]
  3. NORVASC [Concomitant]
  4. LISINOPRIL HCTZ [Concomitant]
  5. PLAVIX [Concomitant]
  6. ASA [Concomitant]
  7. CRESTOR [Concomitant]
  8. SYMBICORT [Concomitant]
  9. SINGULAIR [Concomitant]
  10. SPIRIVA [Concomitant]
  11. ADVAIR DISKUS [Concomitant]
  12. ALBUTEROL [Concomitant]
  13. LASIX [Concomitant]
  14. GLUCOPHAGE [Concomitant]
  15. FLOMAX [Concomitant]
  16. KCL [Concomitant]

REACTIONS (1)
  - Dyspnoea [Unknown]
